FAERS Safety Report 9089314 (Version 1)
Quarter: 2013Q1

REPORT INFORMATION
  Report Type: Report from Study
  Country: US (occurrence: US)
  Receive Date: 20130131
  Receipt Date: 20130131
  Transmission Date: 20140127
  Serious: No
  Sender: FDA-Public Use
  Company Number: US-ABBOTT-12P-163-1015123-00

PATIENT
  Age: 18 Year
  Sex: Female

DRUGS (5)
  1. HUMIRA [Suspect]
     Indication: RHEUMATOID ARTHRITIS
     Dates: start: 201208
  2. HUMIRA [Suspect]
     Indication: CONNECTIVE TISSUE DISORDER
  3. GENERAL BIRTH CONTROL (UNKNOWN NAME) [Concomitant]
     Indication: PRODUCT USED FOR UNKNOWN INDICATION
     Dosage: PILL
  4. UNKNOWN BLOOD PRESSURE PILL [Concomitant]
     Indication: RAYNAUD^S PHENOMENON
     Dosage: PILL
  5. MOBIC [Concomitant]
     Indication: PAIN

REACTIONS (1)
  - Injection site pain [Not Recovered/Not Resolved]
